FAERS Safety Report 9507150 (Version 1)
Quarter: 2013Q1

REPORT INFORMATION
  Report Type: Spontaneous
  Country: US (occurrence: None)
  Receive Date: 20130301
  Receipt Date: 20130301
  Transmission Date: 20140127
  Serious: Yes (Hospitalization, Other)
  Sender: FDA-Public Use
  Company Number: RB-39475-2012

PATIENT
  Age: 22 Year
  Sex: Female

DRUGS (4)
  1. SUBOXONE [Suspect]
     Indication: DRUG DEPENDENCE
     Dates: start: 2010, end: 2011
  2. SUBUTEX [Suspect]
     Indication: DRUG DEPENDENCE
     Route: 060
     Dates: start: 2011, end: 20120226
  3. XANAX [Concomitant]
  4. PROZAC [Concomitant]

REACTIONS (4)
  - Road traffic accident [None]
  - Cervical vertebral fracture [None]
  - Underdose [None]
  - Drug withdrawal syndrome [None]
